FAERS Safety Report 5674858-2 (Version None)
Quarter: 2008Q1

REPORT INFORMATION
  Report Type: 
  Country: None (occurrence: None)
  Receive Date: 20080320
  Receipt Date: 20080313
  Transmission Date: 20080703
  Serious: Yes (Death)
  Sender: FDA-Public Use
  Company Number: US-PFIZER INC-2008023323

PATIENT
  Age: 18 Year
  Sex: Female

DRUGS (4)
  1. GEODON [Suspect]
     Indication: MENTAL RETARDATION
  2. GEODON [Suspect]
     Indication: MENTAL DISORDER
  3. RISPERDAL [Concomitant]
  4. SERTRALINE [Concomitant]

REACTIONS (1)
  - DEATH [None]
